FAERS Safety Report 6289799-X (Version None)
Quarter: 2009Q3

REPORT INFORMATION
  Report Type: 
  Country: None (occurrence: None)
  Receive Date: 20090730
  Receipt Date: 20080731
  Transmission Date: 20100115
  Serious: No
  Sender: FDA-Public Use
  Company Number: US-BRISTOL-MYERS SQUIBB COMPANY-14284541

PATIENT
  Age: 45 Year
  Sex: Male

DRUGS (1)
  1. COUMADIN [Suspect]
     Indication: PULMONARY THROMBOSIS
     Dosage: 5MG/VIAL INJECTABLE INJECTION TWICE DAILY Q12H
     Dates: start: 20080630

REACTIONS (1)
  - CHROMATURIA [None]
